FAERS Safety Report 6199392-5 (Version None)
Quarter: 2009Q2

REPORT INFORMATION
  Report Type: 
  Country: None (occurrence: None)
  Receive Date: 20090520
  Receipt Date: 20090520
  Transmission Date: 20091009
  Serious: Yes (Other)
  Sender: FDA-Public Use
  Company Number: None

PATIENT
  Age: 76 Year
  Sex: Female
  Weight: 71.6683 kg

DRUGS (2)
  1. LOVENOX [Suspect]
     Indication: PULMONARY EMBOLISM
     Dosage: 80 MG/ 0.8 ML TWICE DAILY SQ
     Route: 058
     Dates: start: 20090513, end: 20090513
  2. LOVENOX [Suspect]
     Indication: PULMONARY EMBOLISM
     Dosage: 80 MG/ 0.8 ML TWICE DAILY SQ
     Route: 058
     Dates: start: 20090515, end: 20090515

REACTIONS (2)
  - MUSCULOSKELETAL STIFFNESS [None]
  - NECK PAIN [None]
